FAERS Safety Report 16383557 (Version 1)
Quarter: 2019Q2

REPORT INFORMATION
  Report Type: Spontaneous
  Country: US (occurrence: US)
  Receive Date: 20190426
  Receipt Date: 20190426
  Transmission Date: 20190711
  Serious: Yes (Life-Threatening, Hospitalization, Disabling)
  Sender: FDA-Public Use
  Company Number: None

PATIENT
  Age: 74 Year
  Sex: Female
  Weight: 86.18 kg

DRUGS (12)
  1. ISOSULFAN BLUE. [Suspect]
     Active Substance: ISOSULFAN BLUE
     Indication: PRODUCT USED FOR UNKNOWN INDICATION
     Dates: start: 201605, end: 201605
  2. LOSARTAN. [Concomitant]
     Active Substance: LOSARTAN
  3. ASPIRIN. [Concomitant]
     Active Substance: ASPIRIN
  4. WARFARIN [Concomitant]
     Active Substance: WARFARIN
  5. LEXAPRO [Concomitant]
     Active Substance: ESCITALOPRAM OXALATE
  6. TYLENOL [Concomitant]
     Active Substance: ACETAMINOPHEN
  7. VITAMINS [Concomitant]
     Active Substance: VITAMINS
  8. CRESTOR [Concomitant]
     Active Substance: ROSUVASTATIN CALCIUM
  9. INHALERS [Concomitant]
     Active Substance: UNSPECIFIED INGREDIENT
  10. XANAX [Concomitant]
     Active Substance: ALPRAZOLAM
  11. ICY HOT [Concomitant]
     Active Substance: MENTHOL\METHYL SALICYLATE
  12. HYDROXYUREA. [Concomitant]
     Active Substance: HYDROXYUREA

REACTIONS (2)
  - Anaphylactic reaction [None]
  - Leg amputation [None]

NARRATIVE: CASE EVENT DATE: 2016
